FAERS Safety Report 5782548-0 (Version None)
Quarter: 2008Q2

REPORT INFORMATION
  Report Type: 
  Country: None (occurrence: None)
  Receive Date: 20080623
  Receipt Date: 20080611
  Transmission Date: 20081010
  Serious: Yes (Disabling)
  Sender: FDA-Public Use
  Company Number: CA-PFIZER INC-2008049729

PATIENT
  Age: 50 Year
  Sex: Male

DRUGS (1)
  1. CHANTIX [Suspect]

REACTIONS (6)
  - ANGER [None]
  - DISSOCIATION [None]
  - DISTURBANCE IN ATTENTION [None]
  - FEELING OF DESPAIR [None]
  - INSOMNIA [None]
  - IRRITABILITY [None]
